FAERS Safety Report 25714847 (Version 1)
Quarter: 2025Q3

REPORT INFORMATION
  Report Type: Report from Study
  Country: US (occurrence: US)
  Receive Date: 20250822
  Receipt Date: 20250822
  Transmission Date: 20251021
  Serious: Yes (Hospitalization)
  Sender: ALEXION PHARMACEUTICALS
  Company Number: US-AstraZeneca-CH-00934946A

PATIENT
  Sex: Female

DRUGS (1)
  1. OSIMERTINIB [Suspect]
     Active Substance: OSIMERTINIB
     Dosage: 40 MILLIGRAM, QD

REACTIONS (8)
  - Transient ischaemic attack [Recovering/Resolving]
  - Sinusitis [Recovering/Resolving]
  - Nail disorder [Unknown]
  - Visual impairment [Unknown]
  - Hypoacusis [Unknown]
  - Confusional state [Unknown]
  - Memory impairment [Unknown]
  - Product dose omission issue [Unknown]
